FAERS Safety Report 18707295 (Version 1)
Quarter: 2021Q1

REPORT INFORMATION
  Report Type: Spontaneous
  Country: TR (occurrence: TR)
  Receive Date: 20210106
  Receipt Date: 20210106
  Transmission Date: 20210419
  Serious: Yes (Other)
  Sender: FDA-Public Use
  Company Number: TR-TEVA-2020-TR-1865092

PATIENT
  Age: 76 Year
  Sex: Female

DRUGS (2)
  1. CAPECITABINE. [Suspect]
     Active Substance: CAPECITABINE
     Indication: ADENOCARCINOMA OF COLON
     Dosage: 2000 MILLIGRAM DAILY; ADMINISTERED FOR 2 WEEKS FOLLOWED BY A WEEK OF DRUG?FREE PERIOD (3?WEEK SESSIO
     Route: 048
  2. CAPECITABINE. [Suspect]
     Active Substance: CAPECITABINE
     Dosage: 4000 MILLIGRAM DAILY;
     Route: 048

REACTIONS (2)
  - Cystoid macular oedema [Recovered/Resolved]
  - Visual impairment [Not Recovered/Not Resolved]
